FAERS Safety Report 12114307 (Version 2)
Quarter: 2016Q1

REPORT INFORMATION
  Report Type: Spontaneous
  Country: MY (occurrence: MY)
  Receive Date: 20160225
  Receipt Date: 20160314
  Transmission Date: 20160526
  Serious: Yes (Other)
  Sender: FDA-Public Use
  Company Number: MY-ACTAVIS-2016-04281

PATIENT
  Age: 78 Year
  Sex: Male

DRUGS (7)
  1. PREDNISONE. [Concomitant]
     Active Substance: PREDNISONE
     Indication: MYCOSIS FUNGOIDES
     Dosage: UNKNOWN
     Route: 065
  2. DAUNORUBICIN [Concomitant]
     Active Substance: DAUNORUBICIN
     Indication: MYCOSIS FUNGOIDES
     Dosage: UNKNOWN
     Route: 065
  3. ONCOVIN [Concomitant]
     Active Substance: VINCRISTINE SULFATE
     Indication: MYCOSIS FUNGOIDES
     Dosage: UNKNOWN
     Route: 065
  4. GEMCITABINE [Suspect]
     Active Substance: GEMCITABINE\GEMCITABINE HYDROCHLORIDE
     Indication: MYCOSIS FUNGOIDES
     Dosage: 1000 MG/M2, CYCLICAL, THREE CYCLES
     Route: 042
  5. CYCLOPHOSPHAMIDE. [Concomitant]
     Active Substance: CYCLOPHOSPHAMIDE
     Indication: MYCOSIS FUNGOIDES
     Dosage: UNKNOWN
     Route: 065
  6. VINORELBINE [Suspect]
     Active Substance: VINORELBINE\VINORELBINE TARTRATE
     Indication: MYCOSIS FUNGOIDES
     Dosage: 40 MG, WEEKLY, THREE CYCLES
     Route: 042
  7. FLUDARABINE [Concomitant]
     Active Substance: FLUDARABINE PHOSPHATE
     Indication: MYCOSIS FUNGOIDES
     Dosage: UNKNOWN
     Route: 065

REACTIONS (1)
  - Neutropenia [Unknown]
